FAERS Safety Report 6237457-X (Version None)
Quarter: 2009Q2

REPORT INFORMATION
  Report Type: 
  Country: None (occurrence: None)
  Receive Date: 20090619
  Receipt Date: 20090609
  Transmission Date: 20091009
  Serious: Yes (Other)
  Sender: FDA-Public Use
  Company Number: PHEH2009US05905

PATIENT
  Age: 80 Year
  Sex: Female

DRUGS (3)
  1. TEKTURNA [Suspect]
  2. COZAAR [Suspect]
  3. HYZAAR [Suspect]

REACTIONS (1)
  - CEREBROVASCULAR ACCIDENT [None]
